FAERS Safety Report 4578588-X (Version None)
Quarter: 2005Q1

REPORT INFORMATION
  Report Type: 
  Country: None (occurrence: None)
  Receive Date: 20050209
  Receipt Date: 20050209
  Transmission Date: 20050727
  Serious: No
  Sender: FDA-Public Use
  Company Number: None

PATIENT
  Sex: Female
  Weight: 14.9687 kg

DRUGS (2)
  1. MALATHION [Suspect]
     Indication: LICE INFESTATION
     Dosage: ONE TIME FOR LESS THAN 1 HOUR
     Dates: start: 20050117, end: 20050117
  2. NIX [Concomitant]

REACTIONS (4)
  - DRUG INEFFECTIVE [None]
  - PHARMACEUTICAL PRODUCT COMPLAINT [None]
  - SCREAMING [None]
  - SKIN DISORDER [None]
